FAERS Safety Report 5018371-4 (Version None)
Quarter: 2006Q2

REPORT INFORMATION
  Report Type: 
  Country: None (occurrence: None)
  Receive Date: 20060530
  Receipt Date: 20050614
  Transmission Date: 20061013
  Serious: Yes (Disabling, Other)
  Sender: FDA-Public Use
  Company Number: 2005088204

PATIENT
  Age: 58 Year
  Sex: Female
  Weight: 70 kg

DRUGS (7)
  1. LYRICA [Suspect]
     Indication: NEURALGIA
     Dosage: 150 MG (2 IN 1 D), ORAL
     Route: 048
     Dates: start: 20050603
  2. ALDOLEO (CHLORTALIDONE, SPIRONOLACTONE) [Concomitant]
  3. OSTEOPOR (DURAPATITE) [Concomitant]
  4. FOSAMAX [Concomitant]
  5. NOLOTIL /SPA/ (METAMIZOLE MAGNESIUM) [Concomitant]
  6. KETOROLAC TROMETHAMINE [Concomitant]
  7. OMEPRAZOLE [Concomitant]

REACTIONS (7)
  - ARTHROPATHY [None]
  - EXCITABILITY [None]
  - INSOMNIA [None]
  - MUSCULAR WEAKNESS [None]
  - PAIN [None]
  - SOMNOLENCE [None]
  - SPEECH DISORDER [None]
